FAERS Safety Report 4883002-0 (Version None)
Quarter: 2006Q1

REPORT INFORMATION
  Report Type: 
  Country: None (occurrence: None)
  Receive Date: 20060112
  Receipt Date: 20050722
  Transmission Date: 20060701
  Serious: Yes (Life-Threatening, Hospitalization, Disabling, Other)
  Sender: FDA-Public Use
  Company Number: 2005-07-1482

PATIENT
  Age: 50 Year
  Sex: Male
  Weight: 89 kg

DRUGS (6)
  1. TEMODAL [Suspect]
     Indication: GLIOBLASTOMA
     Dosage: 140 MG QD ORAL
     Route: 048
     Dates: start: 20001012, end: 20001103
  2. DEXAMETHASONE [Suspect]
     Indication: BRAIN OEDEMA
     Dosage: SEE IMAGE
     Route: 048
     Dates: start: 20000814, end: 20000822
  3. DEXAMETHASONE [Suspect]
     Indication: BRAIN OEDEMA
     Dosage: SEE IMAGE
     Route: 048
     Dates: start: 20001010, end: 20001025
  4. DEXAMETHASONE [Suspect]
     Indication: BRAIN OEDEMA
     Dosage: SEE IMAGE
     Route: 048
     Dates: start: 20000814, end: 20001103
  5. DEXAMETHASONE [Suspect]
     Indication: BRAIN OEDEMA
     Dosage: SEE IMAGE
     Route: 048
     Dates: start: 20001026, end: 20001103
  6. RADIATION THERAPY [Concomitant]

REACTIONS (4)
  - CANDIDIASIS [None]
  - ENCEPHALITIS HERPES [None]
  - LYMPHOPENIA [None]
  - MUCOSAL INFLAMMATION [None]
